FAERS Safety Report 22191442 (Version 5)
Quarter: 2023Q2

REPORT INFORMATION
  Report Type: Spontaneous
  Country: US (occurrence: US)
  Receive Date: 20230410
  Receipt Date: 20230620
  Transmission Date: 20230721
  Serious: No
  Sender: FDA-Public Use
  Company Number: US-PFIZER INC-202300140977

PATIENT
  Age: 78 Year
  Sex: Female
  Weight: 68.04 kg

DRUGS (1)
  1. GENOTROPIN [Suspect]
     Active Substance: SOMATROPIN
     Indication: Pituitary tumour
     Dosage: TAKING IS 0.2 ALTERNATIVE WITH 0.4 MG

REACTIONS (5)
  - Wrong device used [Unknown]
  - Device leakage [Unknown]
  - Drug dose omission by device [Unknown]
  - Off label use [Unknown]
  - Contraindicated product administered [Unknown]
